FAERS Safety Report 21349737 (Version 1)
Quarter: 2022Q3

REPORT INFORMATION
  Report Type: Spontaneous
  Country: PT (occurrence: PT)
  Receive Date: 20220919
  Receipt Date: 20220919
  Transmission Date: 20221027
  Serious: Yes (Hospitalization, Other)
  Sender: FDA-Public Use
  Company Number: None

PATIENT
  Age: 66 Year
  Sex: Male
  Weight: 54 kg

DRUGS (6)
  1. KEYTRUDA [Suspect]
     Active Substance: PEMBROLIZUMAB
     Indication: Non-small cell lung cancer
     Dosage: 200 MG 21/21 DAYS
     Route: 042
     Dates: start: 20210823, end: 20220630
  2. BISACODYL [Concomitant]
     Active Substance: BISACODYL
     Dosage: UNK
     Route: 048
  3. ENTECAVIR [Concomitant]
     Active Substance: ENTECAVIR
     Dosage: UNK
  4. ASPIRIN [Concomitant]
     Active Substance: ASPIRIN
     Dosage: UNK
     Route: 048
  5. IBANDRONIC ACID [Concomitant]
     Active Substance: IBANDRONIC ACID
     Dosage: UNK
  6. TAPENTADOL [Concomitant]
     Active Substance: TAPENTADOL
     Dosage: UNK
     Route: 048

REACTIONS (3)
  - Hypersensitivity pneumonitis [Recovering/Resolving]
  - Guillain-Barre syndrome [Recovering/Resolving]
  - Encephalitis [Recovered/Resolved]

NARRATIVE: CASE EVENT DATE: 20220713
